FAERS Safety Report 19412508 (Version 3)
Quarter: 2021Q3

REPORT INFORMATION
  Report Type: Spontaneous
  Country: GB (occurrence: GB)
  Receive Date: 20210614
  Receipt Date: 20210701
  Transmission Date: 20211014
  Serious: Yes (Hospitalization)
  Sender: FDA-Public Use
  Company Number: GB-MYLANLABS-2021M1034020

PATIENT
  Sex: Female
  Weight: 106.2 kg

DRUGS (3)
  1. COLECALCIFEROL [Suspect]
     Active Substance: CHOLECALCIFEROL
     Indication: COVID-19
     Dosage: 800 INTERNATIONAL UNIT, AM
     Route: 048
     Dates: start: 20210605
  2. CLOZARIL [Suspect]
     Active Substance: CLOZAPINE
     Indication: SCHIZOPHRENIA
     Dosage: UNK
     Route: 048
     Dates: start: 20210322
  3. SERTRALINE [Suspect]
     Active Substance: SERTRALINE HYDROCHLORIDE
     Indication: DEPRESSED MOOD
     Dosage: 50 MILLIGRAM, AM
     Route: 048

REACTIONS (3)
  - Off label use [Unknown]
  - Schizophrenia [Recovering/Resolving]
  - Product dose omission issue [Recovered/Resolved]

NARRATIVE: CASE EVENT DATE: 2021
